FAERS Safety Report 5993892-6 (Version None)
Quarter: 2008Q4

REPORT INFORMATION
  Report Type: 
  Country: None (occurrence: None)
  Receive Date: 20081212
  Receipt Date: 20080930
  Transmission Date: 20090506
  Serious: No
  Sender: FDA-Public Use
  Company Number: US-ABBOTT-08P-163-0460800-00

PATIENT
  Sex: Female
  Weight: 41.768 kg

DRUGS (4)
  1. HUMIRA [Suspect]
     Indication: PSORIATIC ARTHROPATHY
     Route: 058
     Dates: start: 20080101
  2. HUMIRA [Suspect]
     Indication: PSORIASIS
     Dosage: PEN
     Route: 058
     Dates: start: 20080101
  3. RANITIDINE [Concomitant]
     Indication: GASTRIC DISORDER
     Route: 048
  4. STEROIDS [Concomitant]
     Indication: INFLAMMATION
     Route: 061
     Dates: start: 20080926

REACTIONS (6)
  - ALOPECIA [None]
  - BREAST DISCHARGE [None]
  - DRUG INEFFECTIVE [None]
  - INFECTIOUS MONONUCLEOSIS [None]
  - OPEN WOUND [None]
  - WOUND SECRETION [None]
